FAERS Safety Report 6426268-8 (Version None)
Quarter: 2009Q4

REPORT INFORMATION
  Report Type: 
  Country: None (occurrence: None)
  Receive Date: 20091104
  Receipt Date: 20091029
  Transmission Date: 20100525
  Serious: Yes (Other)
  Sender: FDA-Public Use
  Company Number: NZ-BRISTOL-MYERS SQUIBB COMPANY-14832232

PATIENT
  Age: 47 Year
  Sex: Male

DRUGS (4)
  1. VIDEX [Suspect]
     Indication: HIV INFECTION
  2. ZERIT [Suspect]
     Indication: HIV INFECTION
  3. VIRACEPT [Suspect]
     Indication: HIV INFECTION
  4. ATORVASTATIN [Suspect]
     Indication: HYPERLIPIDAEMIA

REACTIONS (3)
  - EYELID PTOSIS [None]
  - FACIAL PALSY [None]
  - LIPODYSTROPHY ACQUIRED [None]
